FAERS Safety Report 19643811 (Version 1)
Quarter: 2021Q3

REPORT INFORMATION
  Report Type: Spontaneous
  Country: US (occurrence: US)
  Receive Date: 20210731
  Receipt Date: 20210731
  Transmission Date: 20211014
  Serious: Yes (Hospitalization)
  Sender: FDA-Public Use
  Company Number: US-LUPIN PHARMACEUTICALS INC.-2021-13355

PATIENT
  Age: 51 Year
  Sex: Male

DRUGS (4)
  1. PHENYTOIN SODIUM. [Interacting]
     Active Substance: PHENYTOIN SODIUM
     Dosage: 200 MILLIGRAM (NIGHTLY)
     Route: 048
  2. OMEPRAZOLE. [Interacting]
     Active Substance: OMEPRAZOLE
     Indication: PRODUCT USED FOR UNKNOWN INDICATION
     Dosage: UNK
     Route: 065
  3. PHENYTOIN SODIUM. [Interacting]
     Active Substance: PHENYTOIN SODIUM
     Dosage: 130 MILLIGRAM (NIGHTLY)
     Route: 048
  4. PHENYTOIN SODIUM. [Suspect]
     Active Substance: PHENYTOIN SODIUM
     Indication: SEIZURE
     Dosage: 300 MILLIGRAM (NIGHTLY)
     Route: 048

REACTIONS (6)
  - Mental status changes [Unknown]
  - Drug interaction [Unknown]
  - Fall [Unknown]
  - Dizziness [Unknown]
  - Toxicity to various agents [Unknown]
  - Ataxia [Unknown]
